FAERS Safety Report 10397408 (Version 4)
Quarter: 2015Q1

REPORT INFORMATION
  Report Type: Spontaneous
  Country: US (occurrence: US)
  Receive Date: 20140820
  Receipt Date: 20150213
  Transmission Date: 20150720
  Serious: Yes (Other)
  Sender: FDA-Public Use
  Company Number: US-PFIZER INC-2014231722

PATIENT
  Age: 65 Year
  Sex: Female
  Weight: 55 kg

DRUGS (2)
  1. EFFEXOR XR [Suspect]
     Active Substance: VENLAFAXINE HYDROCHLORIDE
     Indication: DEPRESSION
     Dosage: 150 MG, DAILY
  2. EFFEXOR XR [Suspect]
     Active Substance: VENLAFAXINE HYDROCHLORIDE
     Dosage: 75 MG, 1X/DAY EVERY MORNING
     Dates: start: 2014

REACTIONS (5)
  - Speech disorder [Unknown]
  - Anxiety [Recovered/Resolved]
  - Upper limb fracture [Unknown]
  - Ovarian cancer [Unknown]
  - Asthenia [Unknown]

NARRATIVE: CASE EVENT DATE: 2014
